FAERS Safety Report 10651852 (Version 1)
Quarter: 2014Q4

REPORT INFORMATION
  Report Type: Spontaneous
  Country: IT (occurrence: IT)
  Receive Date: 20141215
  Receipt Date: 20141215
  Transmission Date: 20150529
  Serious: Yes (Hospitalization)
  Sender: FDA-Public Use
  Company Number: IT-TEVA-528536ISR

PATIENT
  Age: 69 Year
  Sex: Male
  Weight: 67 kg

DRUGS (7)
  1. DECODERM CREMA 20 G - ALMIRALL HERMAL GMBH [Suspect]
     Active Substance: FLUPREDNIDENE ACETATE\MICONAZOLE NITRATE
     Indication: DERMATITIS ATOPIC
     Dosage: 1 DOSAGE FORMS DAILY; 1 DF DAILY
     Route: 061
     Dates: start: 20140609, end: 20140615
  2. NEODUPLAMOX - 875 MG/125 MG COMPRESSE RIVESTITE CON FILM [Suspect]
     Active Substance: AMOXICILLIN\CLAVULANATE POTASSIUM
     Indication: PYREXIA
     Dosage: 2 GRAM DAILY; 2 G DAILY
     Route: 048
     Dates: start: 20140617, end: 20140701
  3. CIPROFLOXACIN. [Suspect]
     Active Substance: CIPROFLOXACIN
     Indication: PYREXIA
     Dosage: 750 MILLIGRAM DAILY; 750 MG DAILY
     Route: 048
     Dates: start: 20140702, end: 20140707
  4. ALLOPURINOL. [Suspect]
     Active Substance: ALLOPURINOL
     Indication: OEDEMA PERIPHERAL
     Dosage: 150 MILLIGRAM DAILY; 150 MG DAILY
     Route: 048
     Dates: start: 20140616, end: 20140710
  5. NADROPARIN CALCIUM [Suspect]
     Active Substance: NADROPARIN CALCIUM
     Indication: OEDEMA PERIPHERAL
     Dosage: 3800 IU (INTERNATIONAL UNIT) DAILY; 3800 LU DAILY
     Route: 058
     Dates: start: 20140616, end: 20140630
  6. VOLTAREN [Suspect]
     Active Substance: DICLOFENAC SODIUM
     Indication: PRODUCT USED FOR UNKNOWN INDICATION
     Dosage: 1 % DAILY
     Route: 061
     Dates: start: 20140530, end: 20140601
  7. CARDIOASPIRIN - 100 MG COMPRESSE GASTRORESISTENTI [Suspect]
     Active Substance: ASPIRIN
     Indication: OEDEMA PERIPHERAL
     Dosage: 100 MG DAILY, GASTRO-RESISTANT TABLET
     Route: 048
     Dates: start: 20140616, end: 20140710

REACTIONS (3)
  - Cutaneous vasculitis [Recovered/Resolved]
  - Tremor [None]
  - Oedema [Recovered/Resolved]

NARRATIVE: CASE EVENT DATE: 20140710
